FAERS Safety Report 21166512 (Version 1)
Quarter: 2022Q3

REPORT INFORMATION
  Report Type: Spontaneous
  Country: US (occurrence: None)
  Receive Date: 20220802
  Receipt Date: 20220802
  Transmission Date: 20221027
  Serious: Yes (Other)
  Sender: FDA-Public Use
  Company Number: None

PATIENT
  Age: 61 Year
  Sex: Female

DRUGS (16)
  1. AMBRISENTAN [Suspect]
     Active Substance: AMBRISENTAN
     Indication: Pulmonary arterial hypertension
     Dosage: FREQUENCY : DAILY;?
     Route: 048
     Dates: start: 20140326
  2. UPTRAVI [Concomitant]
  3. SILDENAFIL [Concomitant]
  4. TORSEMIDE [Concomitant]
  5. SPIRONOLACTONE [Concomitant]
  6. ALLOPURINOL [Concomitant]
  7. XALATAN [Concomitant]
     Active Substance: LATANOPROST
  8. ALPHAGAN P [Concomitant]
     Active Substance: BRIMONIDINE TARTRATE
  9. ATORVASTATIN [Concomitant]
     Active Substance: ATORVASTATIN
  10. OMEPRAZOLE [Concomitant]
  11. LEVOTHYROXINE [Concomitant]
  12. ASPIRIN [Concomitant]
  13. ALBUTEROL HFA [Concomitant]
  14. DIGOXIN [Concomitant]
  15. POTASSIUM [Concomitant]
     Active Substance: POTASSIUM
  16. TRAMADOL [Concomitant]

REACTIONS (6)
  - Palpitations [None]
  - Nausea [None]
  - Vomiting [None]
  - Gastrooesophageal reflux disease [None]
  - Anxiety [None]
  - Dyspepsia [None]

NARRATIVE: CASE EVENT DATE: 20220722
